FAERS Safety Report 7478623-5 (Version None)
Quarter: 2011Q2

REPORT INFORMATION
  Report Type: 
  Country: None (occurrence: None)
  Receive Date: 20110511
  Receipt Date: 20110511
  Transmission Date: 20111010
  Serious: No
  Sender: FDA-Public Use
  Company Number: None

PATIENT
  Sex: Male

DRUGS (1)
  1. FLOMAX [Suspect]
     Dosage: 0.4 MG QD PO
     Route: 048
     Dates: start: 20101102, end: 20101201

REACTIONS (2)
  - POLLAKIURIA [None]
  - MICTURITION URGENCY [None]
